FAERS Safety Report 19430217 (Version 1)
Quarter: 2021Q2

REPORT INFORMATION
  Report Type: Spontaneous
  Country: US (occurrence: US)
  Receive Date: 20210618
  Receipt Date: 20210618
  Transmission Date: 20210717
  Serious: Yes (Other)
  Sender: FDA-Public Use
  Company Number: US-AUROBINDO-AUR-APL-2021-025245

PATIENT
  Age: 19 Year
  Sex: Female

DRUGS (1)
  1. NADOLOL. [Suspect]
     Active Substance: NADOLOL
     Indication: VENTRICULAR TACHYCARDIA
     Dosage: 40 MILLIGRAM, DAILY (FOR THREE YEARS )
     Route: 065

REACTIONS (2)
  - Oligohydramnios [Unknown]
  - Maternal exposure during pregnancy [Unknown]
